FAERS Safety Report 16629287 (Version 3)
Quarter: 2021Q4

REPORT INFORMATION
  Report Type: Report from Study
  Country: US (occurrence: US)
  Receive Date: 20190725
  Receipt Date: 20211229
  Transmission Date: 20220303
  Serious: Yes (Other)
  Sender: FDA-Public Use
  Company Number: PHEH2019US030555

PATIENT
  Age: 71 Year
  Sex: Female
  Weight: 84.7 kg

DRUGS (1)
  1. COSENTYX [Suspect]
     Active Substance: SECUKINUMAB
     Indication: Psoriatic arthropathy
     Dosage: 300 MG, QMO
     Route: 058

REACTIONS (4)
  - Breast cancer metastatic [Unknown]
  - Metastases to bone [Unknown]
  - Metastases to lung [Unknown]
  - Psoriasis [Unknown]

NARRATIVE: CASE EVENT DATE: 20190702
